FAERS Safety Report 7226073-9 (Version None)
Quarter: 2011Q1

REPORT INFORMATION
  Report Type: 
  Country: None (occurrence: None)
  Receive Date: 20110113
  Receipt Date: 20110110
  Transmission Date: 20110831
  Serious: Yes (Disabling)
  Sender: FDA-Public Use
  Company Number: FR-GILEAD-2010-0032454

PATIENT
  Sex: Male
  Weight: 84 kg

DRUGS (4)
  1. VIREAD [Concomitant]
     Indication: HIV INFECTION
  2. KALETRA [Concomitant]
     Indication: HIV INFECTION
     Route: 048
     Dates: start: 20080421
  3. LAMIVUDINE (EPIVIR HBV) [Concomitant]
     Indication: HIV INFECTION
  4. TRUVADA [Suspect]
     Indication: HIV INFECTION
     Route: 048
     Dates: start: 20100107, end: 20100318

REACTIONS (1)
  - JOINT LOCK [None]
